FAERS Safety Report 11529037 (Version 1)
Quarter: 2015Q3

REPORT INFORMATION
  Report Type: Spontaneous
  Country: US (occurrence: None)
  Receive Date: 20150918
  Receipt Date: 20150918
  Transmission Date: 20151125
  Serious: Yes (Hospitalization)
  Sender: FDA-Public Use
  Company Number: None

PATIENT
  Age: 57 Year
  Sex: Female
  Weight: 77.11 kg

DRUGS (17)
  1. SIMVASTATIN. [Concomitant]
     Active Substance: SIMVASTATIN
  2. SYMBICORT [Concomitant]
     Active Substance: BUDESONIDE\FORMOTEROL FUMARATE DIHYDRATE
  3. TRILEPTAL [Suspect]
     Active Substance: OXCARBAZEPINE
     Indication: INSOMNIA
     Dosage: 300 MG?1 TABLET BY MOUTH TWICE PER DAY ?2 PER DAY?BY MOUTH
     Route: 048
     Dates: start: 20150702, end: 20150820
  4. ATENOLOL IC [Concomitant]
  5. LANTUS SOLO STAR INSULIN [Concomitant]
  6. LEVOTHYCAS (SYNTHROID) [Concomitant]
  7. JUNIVIA [Concomitant]
  8. ALPRAZOLAM ER (XANAX) [Concomitant]
  9. OMEPRAZOLE (PRILOSEC) [Concomitant]
  10. VIT D (ERGOCALCIFEROL) [Concomitant]
     Active Substance: ERGOCALCIFEROL
  11. CALCIUM [Concomitant]
     Active Substance: CALCIUM
  12. TRILEPTAL [Suspect]
     Active Substance: OXCARBAZEPINE
     Indication: BIPOLAR DISORDER
     Dosage: 300 MG?1 TABLET BY MOUTH TWICE PER DAY ?2 PER DAY?BY MOUTH
     Route: 048
     Dates: start: 20150702, end: 20150820
  13. CALCITROL [Concomitant]
     Active Substance: CALCITRIOL
  14. ASPRIN [Concomitant]
     Active Substance: ASPIRIN
  15. COQ10 [Concomitant]
     Active Substance: UBIDECARENONE
  16. MAGNESIUM OXIDE. [Concomitant]
     Active Substance: MAGNESIUM OXIDE
  17. PROAIR HFA [Concomitant]
     Active Substance: ALBUTEROL SULFATE

REACTIONS (20)
  - Urinary retention [None]
  - Drug withdrawal syndrome [None]
  - Blood sodium decreased [None]
  - Throat tightness [None]
  - Sensory loss [None]
  - Toxicity to various agents [None]
  - Paraesthesia [None]
  - Sinusitis [None]
  - Blood glucose decreased [None]
  - Blood calcium decreased [None]
  - Amnesia [None]
  - Gastric disorder [None]
  - Blood glucose increased [None]
  - Diarrhoea [None]
  - Vomiting [None]
  - Blindness [None]
  - Confusional state [None]
  - Disorientation [None]
  - Fall [None]
  - Viral infection [None]

NARRATIVE: CASE EVENT DATE: 20150720
